FAERS Safety Report 16367710 (Version 1)
Quarter: 2019Q2

REPORT INFORMATION
  Report Type: Report from Study
  Country: US (occurrence: US)
  Receive Date: 20190529
  Receipt Date: 20190529
  Transmission Date: 20190711
  Serious: Yes (Hospitalization, Other)
  Sender: FDA-Public Use
  Company Number: US-ROCHE-2325792

PATIENT
  Age: 49 Year
  Sex: Female
  Weight: 99.88 kg

DRUGS (15)
  1. DECADRON [Suspect]
     Active Substance: DEXAMETHASONE
     Indication: PREMEDICATION
     Route: 065
     Dates: start: 201810, end: 201810
  2. GAZYVA [Suspect]
     Active Substance: OBINUTUZUMAB
     Indication: B-CELL LYMPHOMA
     Dosage: ONE A MONTH FOR 5 MONTHS ;ONGOING: NO
     Route: 042
     Dates: start: 2018, end: 201905
  3. RITUXAN [Suspect]
     Active Substance: RITUXIMAB
     Indication: NON-HODGKIN^S LYMPHOMA
     Dosage: ONCE EVERY 3 WEEKS FOR 18 WEEKS ;ONGOING: NO
     Route: 042
     Dates: start: 201209
  4. VINCRISTINE SULFATE. [Concomitant]
     Active Substance: VINCRISTINE SULFATE
  5. PREDNISONE. [Concomitant]
     Active Substance: PREDNISONE
  6. BENDEKA [Concomitant]
     Active Substance: BENDAMUSTINE HYDROCHLORIDE
     Indication: NON-HODGKIN^S LYMPHOMA
     Dosage: ONGOING:YES
     Route: 065
     Dates: start: 201810
  7. GAZYVA [Suspect]
     Active Substance: OBINUTUZUMAB
     Indication: NON-HODGKIN^S LYMPHOMA
     Dosage: EVERY WEEK FOR A MONTH ;ONGOING: NO
     Route: 042
     Dates: start: 201810, end: 2018
  8. GAZYVA [Suspect]
     Active Substance: OBINUTUZUMAB
     Dosage: ONGOING:YES
     Route: 042
     Dates: start: 201905
  9. DECADRON [Suspect]
     Active Substance: DEXAMETHASONE
     Route: 065
     Dates: start: 2018, end: 2018
  10. DECADRON [Suspect]
     Active Substance: DEXAMETHASONE
     Route: 065
     Dates: start: 2018
  11. BENDEKA [Concomitant]
     Active Substance: BENDAMUSTINE HYDROCHLORIDE
     Dosage: 179 MG ON DAYS 1+2 EVERY 28 DAYS
     Route: 065
  12. CYCLOPHOSPHAMIDE. [Concomitant]
     Active Substance: CYCLOPHOSPHAMIDE
  13. ZEVALIN [Concomitant]
     Active Substance: IBRITUMOMAB TIUXETAN
     Indication: NON-HODGKIN^S LYMPHOMA
     Dosage: ONGOING:NO
     Route: 042
     Dates: start: 20171010, end: 20171010
  14. RITUXAN [Suspect]
     Active Substance: RITUXIMAB
     Dosage: MAINTENANCE DOSE ;ONGOING: NO
     Route: 042
     Dates: end: 2015
  15. RITUXAN [Suspect]
     Active Substance: RITUXIMAB
     Dosage: ONCE A WEEK FOR 2 WEEKS ;ONGOING: NO
     Route: 042
     Dates: start: 201709, end: 2017

REACTIONS (12)
  - Myocardial infarction [Recovering/Resolving]
  - Complication associated with device [Not Recovered/Not Resolved]
  - Feeling jittery [Recovered/Resolved]
  - Ureteral neoplasm [Recovering/Resolving]
  - Bone pain [Recovered/Resolved]
  - Tremor [Recovered/Resolved]
  - Renal failure [Recovering/Resolving]
  - Pain in extremity [Recovered/Resolved]
  - Insomnia [Recovered/Resolved]
  - Fatigue [Not Recovered/Not Resolved]
  - Psychomotor hyperactivity [Recovered/Resolved]
  - Neoplasm [Recovered/Resolved]

NARRATIVE: CASE EVENT DATE: 201209
